FAERS Safety Report 4824076-2 (Version None)
Quarter: 2005Q4

REPORT INFORMATION
  Report Type: 
  Country: None (occurrence: None)
  Receive Date: 20051108
  Receipt Date: 20051101
  Transmission Date: 20060501
  Serious: No
  Sender: FDA-Public Use
  Company Number: USA0507103604

PATIENT
  Age: 22 Year
  Sex: Male
  Weight: 107 kg

DRUGS (1)
  1. STRATTERA [Suspect]
     Indication: ATTENTION DEFICIT/HYPERACTIVITY DISORDER
     Dosage: 80 MG
     Dates: start: 20030516, end: 20050314

REACTIONS (1)
  - ALANINE AMINOTRANSFERASE INCREASED [None]
